FAERS Safety Report 21096334 (Version 1)
Quarter: 2022Q3

REPORT INFORMATION
  Report Type: Spontaneous
  Country: JP (occurrence: JP)
  Receive Date: 20220718
  Receipt Date: 20220718
  Transmission Date: 20221027
  Serious: No
  Sender: FDA-Public Use
  Company Number: JP-ALLERGAN-2222441US

PATIENT
  Age: 38 Year
  Sex: Female

DRUGS (5)
  1. ASENAPINE MALEATE [Suspect]
     Active Substance: ASENAPINE MALEATE
     Indication: Prophylaxis of nausea and vomiting
     Dosage: 5 MG
     Route: 060
     Dates: start: 20210322, end: 20210325
  2. PALONOSETRON HYDROCHLORIDE [Concomitant]
     Active Substance: PALONOSETRON HYDROCHLORIDE
     Dosage: UNK
     Dates: start: 20210322, end: 20210322
  3. APREPITANT [Concomitant]
     Active Substance: APREPITANT
     Dosage: UNK
     Dates: start: 20210322, end: 20210324
  4. DEXAMETHASONE [Concomitant]
     Active Substance: DEXAMETHASONE
     Dosage: UNK
     Dates: start: 20210322, end: 20210325
  5. DOMPERIDONE [Concomitant]
     Active Substance: DOMPERIDONE
     Dosage: UNK
     Dates: start: 20210324, end: 20210326

REACTIONS (10)
  - Cough [Recovered/Resolved]
  - Dysphonia [Not Recovered/Not Resolved]
  - Hiccups [Recovered/Resolved]
  - Malaise [Not Recovered/Not Resolved]
  - Pain [Recovered/Resolved]
  - Stomatitis [Recovered/Resolved]
  - Decreased appetite [Not Recovered/Not Resolved]
  - Constipation [Not Recovered/Not Resolved]
  - Nausea [Not Recovered/Not Resolved]
  - Oral dysaesthesia [Recovered/Resolved]

NARRATIVE: CASE EVENT DATE: 20210322
